FAERS Safety Report 17073116 (Version 1)
Quarter: 2019Q4

REPORT INFORMATION
  Report Type: Report from Study
  Country: None (occurrence: AR)
  Receive Date: 20191125
  Receipt Date: 20191125
  Transmission Date: 20200122
  Serious: Yes (Other)
  Sender: FDA-Public Use
  Company Number: AR-ABBVIE-19K-007-3013687-00

PATIENT
  Age: 72 Year
  Sex: Male

DRUGS (1)
  1. HUMIRA [Suspect]
     Active Substance: ADALIMUMAB
     Indication: HIDRADENITIS
     Route: 058
     Dates: start: 20180201

REACTIONS (5)
  - Procedural pain [Unknown]
  - Wound complication [Unknown]
  - Cryotherapy [Unknown]
  - Buttock injury [Unknown]
  - Purulence [Unknown]

NARRATIVE: CASE EVENT DATE: 20191116
